FAERS Safety Report 10184169 (Version 2)
Quarter: 2014Q2

REPORT INFORMATION
  Report Type: Spontaneous
  Country: US (occurrence: US)
  Receive Date: 20140520
  Receipt Date: 20140520
  Transmission Date: 20141212
  Serious: No
  Sender: FDA-Public Use
  Company Number: US-ASTRAZENECA-2013SE67477

PATIENT
  Sex: Male

DRUGS (7)
  1. ENTOCORT EC [Suspect]
     Route: 048
  2. CIPRO [Suspect]
     Route: 065
  3. PENTASA [Suspect]
     Route: 065
  4. FLAGYL [Suspect]
     Route: 065
  5. REMICADE [Concomitant]
  6. CIMZIA [Concomitant]
  7. HUMIRA [Concomitant]

REACTIONS (2)
  - Condition aggravated [Not Recovered/Not Resolved]
  - Drug ineffective [Unknown]
